FAERS Safety Report 4652349-5 (Version None)
Quarter: 2005Q2

REPORT INFORMATION
  Report Type: 
  Country: None (occurrence: None)
  Receive Date: 20050504
  Receipt Date: 20050422
  Transmission Date: 20051028
  Serious: Yes (Life-Threatening)
  Sender: FDA-Public Use
  Company Number: B0379603 B0379603A

PATIENT
  Age: 60 Year
  Sex: Male

DRUGS (1)
  1. QUILONORM RETARD [Suspect]
     Indication: DEPRESSION
     Route: 048
     Dates: start: 20000301

REACTIONS (3)
  - ABDOMINAL DISTENSION [None]
  - OEDEMA [None]
  - TESTICULAR SWELLING [None]
